FAERS Safety Report 20706519 (Version 1)
Quarter: 2022Q2

REPORT INFORMATION
  Report Type: Spontaneous
  Country: US (occurrence: None)
  Receive Date: 20220411
  Receipt Date: 20220411
  Transmission Date: 20220720
  Serious: Yes (Death, Hospitalization)
  Sender: FDA-Public Use
  Company Number: None

PATIENT
  Age: 21 Year
  Sex: Male
  Weight: 61.23 kg

DRUGS (2)
  1. HERBALS\MITRAGYNINE [Suspect]
     Active Substance: HERBALS\MITRAGYNINE
     Indication: Alcohol detoxification
     Dates: start: 20180801, end: 20210205
  2. Fluoxetine, 40mg daily [Concomitant]

REACTIONS (2)
  - Dependence [None]
  - Seizure [None]

NARRATIVE: CASE EVENT DATE: 20210205
